FAERS Safety Report 4485186-5 (Version None)
Quarter: 2004Q4

REPORT INFORMATION
  Report Type: 
  Country: None (occurrence: None)
  Receive Date: 20041026
  Receipt Date: 20040310
  Transmission Date: 20050328
  Serious: No
  Sender: FDA-Public Use
  Company Number: US-BRISTOL-MYERS SQUIBB COMPANY-12530390

PATIENT
  Age: 77 Year
  Sex: Female
  Weight: 73 kg

DRUGS (8)
  1. GLUCOPHAGE XR [Suspect]
     Indication: DIABETES MELLITUS
     Dosage: DURATION OF THERAPY:  ^2-3 YEARS^
     Route: 048
  2. AMARYL [Concomitant]
  3. ZESTORETIC [Concomitant]
  4. IMODIUM [Concomitant]
  5. COUMADIN [Concomitant]
  6. RITUXAN [Concomitant]
     Dates: start: 20031001, end: 20040201
  7. CYCLOPHOSPHAMIDE [Concomitant]
     Dates: start: 20031001, end: 20040201
  8. DOXORUBICIN HCL [Concomitant]
     Dates: start: 20031001, end: 20040201

REACTIONS (1)
  - DIARRHOEA [None]
